FAERS Safety Report 6494694-7 (Version None)
Quarter: 2009Q4

REPORT INFORMATION
  Report Type: 
  Country: None (occurrence: None)
  Receive Date: 20091214
  Receipt Date: 20090316
  Transmission Date: 20100525
  Serious: No
  Sender: FDA-Public Use
  Company Number: US-BRISTOL-MYERS SQUIBB COMPANY-14545461

PATIENT
  Age: 56 Year
  Sex: Male
  Weight: 88 kg

DRUGS (3)
  1. ABILIFY [Suspect]
     Indication: BIPOLAR DISORDER
     Dosage: DOSE REDUCED TO 7.5MG THEN TO 5MG THEN DISCONTINUED RESTARTED AT 5 MG ON 14MAR09
  2. LAMICTAL [Concomitant]
  3. COLAZAL [Concomitant]

REACTIONS (1)
  - TARDIVE DYSKINESIA [None]
